FAERS Safety Report 14108060 (Version 1)
Quarter: 2017Q4

REPORT INFORMATION
  Report Type: Other
  Country: US (occurrence: NL)
  Receive Date: 20171019
  Receipt Date: 20171019
  Transmission Date: 20180321
  Serious: Yes (Death)
  Sender: FDA-Public Use
  Company Number: NL-BRECKENRIDGE PHARMACEUTICAL, INC.-2030744

PATIENT
  Age: 72 Year
  Sex: Female

DRUGS (3)
  1. POLYETHYLENE GLYCOL [Suspect]
     Active Substance: POLYETHYLENE GLYCOLS
  2. HYDROCHLOROTHIAZIDE. [Concomitant]
     Active Substance: HYDROCHLOROTHIAZIDE
  3. B-BLOCKER [Concomitant]
     Active Substance: UNSPECIFIED INGREDIENT

REACTIONS (3)
  - Hypokalaemia [Fatal]
  - Cardiac arrest [Fatal]
  - Acidosis [Fatal]
